FAERS Safety Report 11552468 (Version 2)
Quarter: 2015Q3

REPORT INFORMATION
  Report Type: Spontaneous
  Country: US (occurrence: US)
  Receive Date: 20150925
  Receipt Date: 20150929
  Transmission Date: 20151125
  Serious: No
  Sender: FDA-Public Use
  Company Number: US-PFIZER INC-2015320135

PATIENT
  Age: 79 Year
  Sex: Male

DRUGS (1)
  1. SERTRALINE HCL [Suspect]
     Active Substance: SERTRALINE HYDROCHLORIDE
     Indication: DEPRESSION
     Dosage: 250 MG, DAILY

REACTIONS (5)
  - Drug ineffective [Unknown]
  - Overdose [Unknown]
  - Malaise [Unknown]
  - Depression [Unknown]
  - Condition aggravated [Unknown]
